FAERS Safety Report 5138166-0 (Version None)
Quarter: 2006Q4

REPORT INFORMATION
  Report Type: 
  Country: None (occurrence: None)
  Receive Date: 20061025
  Receipt Date: 20061025
  Transmission Date: 20070319
  Serious: Yes (Other)
  Sender: FDA-Public Use
  Company Number: None

PATIENT
  Age: 60 Year
  Sex: Male
  Weight: 91.2 kg

DRUGS (9)
  1. SIMVASTATIN [Suspect]
  2. PYRIDOSTIGMINE BROMIDE [Concomitant]
  3. NIACIN [Concomitant]
  4. FEXOFENADINE HCL [Concomitant]
  5. LISINOPRIL [Concomitant]
  6. SIMVASTATIN [Concomitant]
  7. LEVALBUTEROL TART [Concomitant]
  8. FLUNISOLIDE [Concomitant]
  9. IBUPROFEN [Concomitant]

REACTIONS (1)
  - MYALGIA [None]
